FAERS Safety Report 10425177 (Version 1)
Quarter: 2014Q3

REPORT INFORMATION
  Report Type: Spontaneous
  Country: JP (occurrence: JP)
  Receive Date: 20140902
  Receipt Date: 20140902
  Transmission Date: 20150326
  Serious: Yes (Other)
  Sender: FDA-Public Use
  Company Number: PHHY2011JP122474

PATIENT
  Sex: Male

DRUGS (4)
  1. TASIGNA [Suspect]
     Active Substance: NILOTINIB
     Indication: CHRONIC MYELOID LEUKAEMIA
     Dosage: 800 UKN, DAILY
     Dates: start: 20111006
  2. TASIGNA [Suspect]
     Active Substance: NILOTINIB
     Dosage: UNK
     Dates: end: 20120105
  3. TASIGNA [Suspect]
     Active Substance: NILOTINIB
     Dosage: 800 MG, UNK
  4. TASIGNA [Suspect]
     Active Substance: NILOTINIB
     Dosage: UNK, DOSE REDUCED TO HALF

REACTIONS (2)
  - Pigmentation disorder [Unknown]
  - Electrocardiogram QT prolonged [Unknown]
